FAERS Safety Report 8292978-3 (Version None)
Quarter: 2012Q2

REPORT INFORMATION
  Report Type: 
  Country: None (occurrence: None)
  Receive Date: 20120417
  Receipt Date: 20120229
  Transmission Date: 20120825
  Serious: No
  Sender: FDA-Public Use
  Company Number: US-ASTRAZENECA-2011SE67448

PATIENT
  Age: 87 Year
  Sex: Female

DRUGS (2)
  1. NEXIUM [Suspect]
     Indication: HIATUS HERNIA
     Route: 048
     Dates: start: 20111025, end: 20111031
  2. MIRALAX [Concomitant]

REACTIONS (15)
  - CONDITION AGGRAVATED [None]
  - GASTRIC DISORDER [None]
  - CHEST PAIN [None]
  - GASTROINTESTINAL DISORDER [None]
  - OFF LABEL USE [None]
  - DRUG INTOLERANCE [None]
  - PNEUMONIA [None]
  - SINUSITIS [None]
  - GASTROINTESTINAL PAIN [None]
  - INTESTINAL OBSTRUCTION [None]
  - MIDDLE EAR EFFUSION [None]
  - COUGH [None]
  - BACK DISORDER [None]
  - FACE OEDEMA [None]
  - MOVEMENT DISORDER [None]
